FAERS Safety Report 8613146-9 (Version None)
Quarter: 2012Q3

REPORT INFORMATION
  Report Type: 
  Country: None (occurrence: None)
  Receive Date: 20120822
  Receipt Date: 20120731
  Transmission Date: 20120928
  Serious: Yes (Death, Other)
  Sender: FDA-Public Use
  Company Number: JP-009507513-1208JPN000840

PATIENT

DRUGS (3)
  1. TEMODAL [Suspect]
     Indication: MALIGNANT GLIOMA
     Dosage: 60 MG, ONCE
     Route: 048
     Dates: start: 20110909, end: 20110921
  2. PHENOBARBITAL TAB [Suspect]
     Indication: EPILEPSY
     Route: 048
     Dates: start: 20110816, end: 20110921
  3. SULFAMETHOXAZOLE AND TRIMETHOPRIM [Suspect]
     Indication: ANTIFUNGAL PROPHYLAXIS
     Dosage: DAILY DOSAGE UNKNOWN
     Route: 048
     Dates: start: 20110909, end: 20110921

REACTIONS (1)
  - TOXIC EPIDERMAL NECROLYSIS [None]
